FAERS Safety Report 17356700 (Version 1)
Quarter: 2020Q1

REPORT INFORMATION
  Report Type: Spontaneous
  Country: FR (occurrence: FR)
  Receive Date: 20200131
  Receipt Date: 20200131
  Transmission Date: 20200409
  Serious: Yes (Hospitalization)
  Sender: FDA-Public Use
  Company Number: NVSC2020FR023381

PATIENT
  Age: 78 Year
  Sex: Female
  Weight: 43 kg

DRUGS (6)
  1. DACRYOSERUM [Suspect]
     Active Substance: BORIC ACID\SODIUM BORATE
     Indication: DRY EYE
     Dosage: 1 DF, QD
     Route: 048
  2. UVEDOSE [Concomitant]
     Active Substance: CHOLECALCIFEROL
     Indication: VITAMIN SUPPLEMENTATION
     Dosage: UNK
     Route: 048
  3. RISEDRONATE SODIUM. [Suspect]
     Active Substance: RISEDRONATE SODIUM
     Indication: OSTEOPOROSIS PROPHYLAXIS
     Dosage: 35 MG, QW
     Route: 048
  4. ANASTROZOLE. [Suspect]
     Active Substance: ANASTROZOLE
     Indication: PRODUCT USED FOR UNKNOWN INDICATION
     Dosage: 1 MG, QD
     Route: 048
     Dates: start: 2014
  5. ANAFRANIL [Suspect]
     Active Substance: CLOMIPRAMINE HYDROCHLORIDE
     Indication: DEPRESSION
     Dosage: 1 DF, QD
     Route: 048
  6. SERESTA [Suspect]
     Active Substance: OXAZEPAM
     Indication: ANXIETY
     Dosage: 1 DF, QD
     Route: 048

REACTIONS (1)
  - Vertigo [Recovered/Resolved]

NARRATIVE: CASE EVENT DATE: 20181113
